FAERS Safety Report 11184542 (Version 1)
Quarter: 2015Q2

REPORT INFORMATION
  Report Type: Spontaneous
  Country: IN (occurrence: IN)
  Receive Date: 20150612
  Receipt Date: 20150612
  Transmission Date: 20150821
  Serious: Yes (Other)
  Sender: FDA-Public Use
  Company Number: IN-SUN PHARMACEUTICAL INDUSTRIES LTD-2015R1-98793

PATIENT
  Age: 63 Year
  Sex: Male

DRUGS (1)
  1. FORTWIN [Suspect]
     Active Substance: PENTAZOCINE
     Indication: PRODUCT USED FOR UNKNOWN INDICATION
     Dosage: 1 ML, QID
     Route: 030
     Dates: start: 19990901, end: 20150325

REACTIONS (3)
  - Self-medication [Unknown]
  - Drug withdrawal syndrome [Unknown]
  - Drug dependence [Unknown]
